FAERS Safety Report 14666704 (Version 2)
Quarter: 2018Q2

REPORT INFORMATION
  Report Type: Spontaneous
  Country: RU (occurrence: RU)
  Receive Date: 20180322
  Receipt Date: 20180419
  Transmission Date: 20180711
  Serious: Yes (Hospitalization, Other)
  Sender: FDA-Public Use
  Company Number: RU-BIOGEN-2018BI00544667

PATIENT
  Age: 33 Year

DRUGS (1)
  1. TYSABRI [Suspect]
     Active Substance: NATALIZUMAB
     Indication: MULTIPLE SCLEROSIS
     Route: 042
     Dates: start: 20160729, end: 20180129

REACTIONS (4)
  - Multiple sclerosis relapse [Unknown]
  - Mitral valve prolapse [Unknown]
  - Ankylosing spondylitis [Recovered/Resolved]
  - Balanoposthitis [Unknown]

NARRATIVE: CASE EVENT DATE: 201609
